FAERS Safety Report 8773803 (Version 2)
Quarter: 2012Q4

REPORT INFORMATION
  Report Type: 
  Country: US (occurrence: US)
  Receive Date: 20120907
  Receipt Date: 20120921
  Transmission Date: 20130627
  Serious: Yes (Death, Other)
  Sender: FDA-Public Use
  Company Number: US-UCBSA-064916

PATIENT
  Age: 68 Year
  Sex: Male
  Weight: 184 kg

DRUGS (4)
  1. VIMPAT [Suspect]
     Indication: TEMPORAL LOBE EPILEPSY
     Dates: start: 20110428, end: 20120327
  2. LAMOTRIGINE [Suspect]
     Indication: TEMPORAL LOBE EPILEPSY
     Dosage: BEFORE APR-2010
     Dates: end: 20120803
  3. PHENYTOIN [Suspect]
     Indication: TEMPORAL LOBE EPILEPSY
     Dates: start: 20110720, end: 20120803
  4. TOPIRAMATE [Suspect]
     Indication: TEMPORAL LOBE EPILEPSY
     Route: 048
     Dates: start: 20120215, end: 20120803

REACTIONS (1)
  - Glioblastoma multiforme [Fatal]
